FAERS Safety Report 20307315 (Version 2)
Quarter: 2022Q2

REPORT INFORMATION
  Report Type: Spontaneous
  Country: US (occurrence: US)
  Receive Date: 20220107
  Receipt Date: 20220622
  Transmission Date: 20220720
  Serious: No
  Sender: FDA-Public Use
  Company Number: US-BEH-2021139621

PATIENT
  Sex: Male

DRUGS (2)
  1. HAEGARDA [Suspect]
     Active Substance: HUMAN C1-ESTERASE INHIBITOR
     Indication: Hereditary angioedema
     Dosage: 2250 INTERNATIONAL UNIT, BIW
     Route: 058
     Dates: start: 20210527
  2. HAEGARDA [Suspect]
     Active Substance: HUMAN C1-ESTERASE INHIBITOR
     Indication: Prophylaxis
     Dosage: 2250 INTERNATIONAL UNIT, BIW
     Route: 058
     Dates: start: 20210526

REACTIONS (2)
  - Weight fluctuation [Unknown]
  - Weight increased [Unknown]
